FAERS Safety Report 23705051 (Version 2)
Quarter: 2024Q2

REPORT INFORMATION
  Report Type: Spontaneous
  Country: US (occurrence: US)
  Receive Date: 20240404
  Receipt Date: 20240411
  Transmission Date: 20240716
  Serious: Yes (Life-Threatening, Other)
  Sender: FDA-Public Use
  Company Number: None

PATIENT
  Age: 78 Year
  Sex: Female

DRUGS (3)
  1. IBUPROFEN [Suspect]
     Active Substance: IBUPROFEN
     Indication: Product used for unknown indication
     Dosage: UNK
     Route: 065
  2. CALCIUM CARBONATE [Suspect]
     Active Substance: CALCIUM CARBONATE
     Indication: Product used for unknown indication
     Dosage: 6 DOSAGE FORM, QD (667 MG)
     Route: 065
  3. CALCITRIOL [Suspect]
     Active Substance: CALCITRIOL
     Indication: Blood parathyroid hormone abnormal
     Dosage: 0.5 MICROGRAM, QD
     Route: 065

REACTIONS (8)
  - Chronic kidney disease-mineral and bone disorder [Unknown]
  - Osteoporosis [Unknown]
  - Wrist fracture [Unknown]
  - Stress fracture [Unknown]
  - Fall [Unknown]
  - Hand fracture [Unknown]
  - Foot fracture [Unknown]
  - Hypercalcaemia [Unknown]
